FAERS Safety Report 10871840 (Version 2)
Quarter: 2015Q1

REPORT INFORMATION
  Report Type: Spontaneous
  Country: IT (occurrence: IT)
  Receive Date: 20150226
  Receipt Date: 20150325
  Transmission Date: 20150721
  Serious: Yes (Death, Hospitalization)
  Sender: FDA-Public Use
  Company Number: IT-BAYER-2015-028523

PATIENT
  Age: 88 Year
  Sex: Female

DRUGS (7)
  1. XALATAN [Concomitant]
     Active Substance: LATANOPROST
     Dosage: DAILY DOSE 1 GTT
  2. TRIATEC HCT [Concomitant]
     Active Substance: HYDROCHLOROTHIAZIDE\RAMIPRIL
     Dosage: DAILY DOSE 1 DF
  3. POLASE [Concomitant]
     Active Substance: MAGNESIUM ASPARTATE\POTASSIUM ASPARTATE
     Dosage: DAILY DOSE 2 DF
     Route: 048
  4. ARIXTRA [Suspect]
     Active Substance: FONDAPARINUX SODIUM
     Indication: THROMBOSIS PROPHYLAXIS
     Dosage: DAILY DOSE 1.5 MG
     Route: 058
     Dates: start: 20130627, end: 20130714
  5. CARDIOASPIRIN [Suspect]
     Active Substance: ASPIRIN
     Indication: PROPHYLAXIS
     Dosage: UNK
     Route: 048
  6. VENITRIN [Concomitant]
     Active Substance: NITROGLYCERIN
     Dosage: UNK
     Route: 062
  7. TIMOLOL [Concomitant]
     Active Substance: TIMOLOL
     Dosage: DAILY DOSE 1 GTT

REACTIONS (1)
  - Cerebral haemorrhage [Fatal]

NARRATIVE: CASE EVENT DATE: 20130714
